FAERS Safety Report 4957921-0 (Version None)
Quarter: 2006Q1

REPORT INFORMATION
  Report Type: 
  Country: None (occurrence: None)
  Receive Date: 20060330
  Receipt Date: 20060322
  Transmission Date: 20060701
  Serious: Yes (Hospitalization, Other)
  Sender: FDA-Public Use
  Company Number: US-AMGEN-US165907

PATIENT
  Sex: Male

DRUGS (20)
  1. EPOGEN [Suspect]
     Indication: DIALYSIS
     Route: 065
     Dates: start: 20041111, end: 20060101
  2. MIDODRINE HCL [Concomitant]
  3. ZOFRAN [Concomitant]
  4. LIPITOR [Concomitant]
  5. VITAMINS NOS [Concomitant]
  6. LASIX [Concomitant]
  7. INSULIN [Concomitant]
  8. LEVAQUIN [Concomitant]
  9. NIFEDIPINE [Concomitant]
  10. OLANZAPINE [Concomitant]
  11. METOPROLOL [Concomitant]
  12. MINOXIDIL [Concomitant]
  13. RENAGEL [Concomitant]
  14. SENSIPAR [Concomitant]
  15. SERTRALINE [Concomitant]
  16. TUMS [Concomitant]
  17. TYLENOL (CAPLET) [Concomitant]
  18. PANTOPRAZOLE [Concomitant]
  19. RITUXIMAB [Concomitant]
     Dates: start: 20051101
  20. CALCIUM CARBONATE [Concomitant]

REACTIONS (7)
  - ARTERIOVENOUS GRAFT THROMBOSIS [None]
  - CARDIAC FAILURE CONGESTIVE [None]
  - FALL [None]
  - LOCALISED INFECTION [None]
  - NON-HODGKIN'S LYMPHOMA [None]
  - SUBDURAL HAEMATOMA [None]
  - THERAPEUTIC RESPONSE DECREASED [None]
